FAERS Safety Report 6400182-6 (Version None)
Quarter: 2009Q4

REPORT INFORMATION
  Report Type: 
  Country: None (occurrence: None)
  Receive Date: 20091014
  Receipt Date: 20090928
  Transmission Date: 20100525
  Serious: Yes (Other)
  Sender: FDA-Public Use
  Company Number: US-BAYER-200934430NA

PATIENT
  Age: 63 Year
  Sex: Male

DRUGS (1)
  1. CAMPATH [Suspect]
     Indication: B-CELL LYMPHOMA
     Dosage: TOTAL DAILY DOSE: 30 MG
     Dates: start: 20090901, end: 20090901

REACTIONS (6)
  - ISOSPORIASIS [None]
  - LYMPHOCYTE COUNT DECREASED [None]
  - NEUTROPHIL COUNT DECREASED [None]
  - PLATELET COUNT DECREASED [None]
  - PYREXIA [None]
  - RESPIRATORY DISORDER [None]
